FAERS Safety Report 18897383 (Version 1)
Quarter: 2021Q1

REPORT INFORMATION
  Report Type: Spontaneous
  Country: PL (occurrence: PL)
  Receive Date: 20210215
  Receipt Date: 20210215
  Transmission Date: 20210420
  Serious: Yes (Other)
  Sender: FDA-Public Use
  Company Number: PL-BAXTER-2021BAX002683

PATIENT
  Sex: Male

DRUGS (2)
  1. HEMOSOL BO [Suspect]
     Active Substance: CALCIUM CL\DEXTROSE\LACTIC ACID\MAGNESIUM CL\POTASSIUM CL\SODIUM BICAR\SODIUM CL
     Indication: RENAL REPLACEMENT THERAPY
     Route: 010
  2. PRISMASOL [Suspect]
     Active Substance: DEXTROSE\LACTIC ACID\MAGNESIUM CL\POTASSIUM CL\SODIUM BICARBONATE\SODIUM CL
     Indication: RENAL REPLACEMENT THERAPY
     Route: 010

REACTIONS (2)
  - Coagulopathy [Recovered/Resolved]
  - Thrombocytopenia [Recovered/Resolved]
